FAERS Safety Report 26176154 (Version 1)
Quarter: 2025Q4

REPORT INFORMATION
  Report Type: Spontaneous
  Country: US (occurrence: None)
  Receive Date: 20251218
  Receipt Date: 20251218
  Transmission Date: 20260118
  Serious: Yes (Hospitalization)
  Sender: FDA-CTU
  Company Number: None

PATIENT
  Sex: Female

DRUGS (2)
  1. OJJAARA [Suspect]
     Active Substance: MOMELOTINIB DIHYDROCHLORIDE MONOHYDRATE
     Indication: Chronic lymphocytic leukaemia
     Dosage: FREQUENCY : DAILY;
     Route: 048
     Dates: start: 20251112
  2. IMBRUVICA [Concomitant]
     Active Substance: IBRUTINIB

REACTIONS (1)
  - Oxygen saturation decreased [None]
